FAERS Safety Report 5860242-5 (Version None)
Quarter: 2008Q3

REPORT INFORMATION
  Report Type: 
  Country: None (occurrence: None)
  Receive Date: 20080827
  Receipt Date: 20080820
  Transmission Date: 20090109
  Serious: Yes (Hospitalization)
  Sender: FDA-Public Use
  Company Number: US-GENENTECH-264542

PATIENT
  Sex: Male
  Weight: 92.517 kg

DRUGS (1)
  1. RITUXAN [Suspect]
     Indication: NON-HODGKIN'S LYMPHOMA
     Dosage: 750 MG, Q21D
     Route: 042
     Dates: start: 20080714, end: 20080714

REACTIONS (3)
  - ATRIAL FIBRILLATION [None]
  - CONVULSION [None]
  - HYPERTENSION [None]
